FAERS Safety Report 8072389-6 (Version None)
Quarter: 2012Q1

REPORT INFORMATION
  Report Type: 
  Country: None (occurrence: None)
  Receive Date: 20120126
  Receipt Date: 20120118
  Transmission Date: 20120608
  Serious: Yes (Death)
  Sender: FDA-Public Use
  Company Number: IL-US-EMD SERONO, INC.-7107905

PATIENT
  Sex: Female

DRUGS (1)
  1. REBIF [Suspect]
     Indication: RELAPSING-REMITTING MULTIPLE SCLEROSIS
     Route: 058
     Dates: start: 20040101, end: 20111001

REACTIONS (6)
  - FALL [None]
  - MULTIPLE SCLEROSIS RELAPSE [None]
  - SURGERY [None]
  - KNEE OPERATION [None]
  - ROAD TRAFFIC ACCIDENT [None]
  - DEATH [None]
